FAERS Safety Report 11855056 (Version 1)
Quarter: 2015Q4

REPORT INFORMATION
  Report Type: Report from Study
  Country: BR (occurrence: BR)
  Receive Date: 20151221
  Receipt Date: 20151221
  Transmission Date: 20160305
  Serious: Yes (Hospitalization, Other)
  Sender: FDA-Public Use
  Company Number: BR-ROCHE-1678432

PATIENT
  Age: 58 Year
  Sex: Female
  Weight: 67 kg

DRUGS (5)
  1. ACTEMRA [Suspect]
     Active Substance: TOCILIZUMAB
     Indication: RHEUMATOID ARTHRITIS
     Dosage: ON 30/NOV/2015, HE RECEIVED THE MOST RECENT DOSE OF TOCILIZUMAB.
     Route: 042
     Dates: start: 20140505
  2. CORTISONE [Suspect]
     Active Substance: CORTISONE\HYDROCORTISONE
     Indication: PAIN
     Dosage: 1 TABLET, TWICE A DAY
     Route: 065
  3. ATORVASTATIN [Concomitant]
     Active Substance: ATORVASTATIN
     Route: 065
     Dates: start: 2005
  4. CORTISONE [Suspect]
     Active Substance: CORTISONE\HYDROCORTISONE
     Dosage: 2 TABLETS A DAY AND 2 AT NIGHT
     Route: 065
  5. DIOVAN AMLO FIX [Concomitant]
     Active Substance: AMLODIPINE\VALSARTAN
     Indication: HYPERTENSION
     Route: 065
     Dates: start: 2011

REACTIONS (11)
  - Nasopharyngitis [Unknown]
  - Visual acuity reduced [Not Recovered/Not Resolved]
  - Pain [Not Recovered/Not Resolved]
  - Alopecia [Not Recovered/Not Resolved]
  - Postoperative abscess [Unknown]
  - Tooth disorder [Unknown]
  - Intervertebral disc protrusion [Not Recovered/Not Resolved]
  - Weight increased [Unknown]
  - Increased bronchial secretion [Recovered/Resolved]
  - Blood glucose abnormal [Unknown]
  - Cataract [Not Recovered/Not Resolved]

NARRATIVE: CASE EVENT DATE: 201507
